FAERS Safety Report 25986063 (Version 2)
Quarter: 2025Q4

REPORT INFORMATION
  Report Type: Spontaneous
  Country: EU (occurrence: EU)
  Receive Date: 20251031
  Receipt Date: 20251113
  Transmission Date: 20260119
  Serious: Yes (Hospitalization)
  Sender: MERCK SHARP & DOHME LLC
  Company Number: None

PATIENT
  Age: 75 Year
  Sex: Female
  Weight: 55.5 kg

DRUGS (17)
  1. KEYTRUDA [Suspect]
     Active Substance: PEMBROLIZUMAB
     Indication: Lung adenocarcinoma
     Route: 042
     Dates: start: 20231220, end: 20250722
  2. METHYLPREDNISOLONE [Concomitant]
     Active Substance: METHYLPREDNISOLONE
  3. PREGABALIN [Concomitant]
     Active Substance: PREGABALIN
  4. SYMBICORT [Concomitant]
     Active Substance: BUDESONIDE\FORMOTEROL FUMARATE DIHYDRATE
  5. KARDEGIC [Concomitant]
     Active Substance: ASPIRIN DL-LYSINE
  6. ESCITALOPRAM [Concomitant]
     Active Substance: ESCITALOPRAM OXALATE
  7. KETOPROFEN [Concomitant]
     Active Substance: KETOPROFEN
  8. MINERAL OIL [Concomitant]
     Active Substance: MINERAL OIL
  9. PRAZEPAM [Concomitant]
     Active Substance: PRAZEPAM
  10. Tiotropium (bromide) monohydrate [Concomitant]
  11. ALBUTEROL [Concomitant]
     Active Substance: ALBUTEROL
  12. LIDOCAINE [Concomitant]
     Active Substance: LIDOCAINE
  13. OXYCONTIN [Concomitant]
     Active Substance: OXYCODONE HYDROCHLORIDE
  14. ZOPICLONE [Concomitant]
     Active Substance: ZOPICLONE
  15. NICOTINE [Concomitant]
     Active Substance: NICOTINE
  16. PANTOPRAZOLE [Concomitant]
     Active Substance: PANTOPRAZOLE
  17. ACETAMINOPHEN [Concomitant]
     Active Substance: ACETAMINOPHEN

REACTIONS (1)
  - Stress cardiomyopathy [Recovered/Resolved]

NARRATIVE: CASE EVENT DATE: 20250725
